FAERS Safety Report 17196399 (Version 4)
Quarter: 2020Q2

REPORT INFORMATION
  Report Type: Report from Study
  Country: CO (occurrence: CO)
  Receive Date: 20191224
  Receipt Date: 20200512
  Transmission Date: 20200713
  Serious: Yes (Hospitalization, Other)
  Sender: FDA-Public Use
  Company Number: CO-ASTELLAS-2019US027008

PATIENT
  Age: 35 Year
  Sex: Female
  Weight: 45 kg

DRUGS (23)
  1. TACROLIMUS. [Suspect]
     Active Substance: TACROLIMUS
     Dosage: 19 MG, ONCE DAILY 3 CAPSULES OF 5 MG AND 4 CAPSULES OF 1 MG)
     Route: 048
     Dates: start: 20191213, end: 20200329
  2. MYCOPHENOLATE [Concomitant]
     Active Substance: MYCOPHENOLIC ACID
     Indication: RENAL TRANSPLANT
     Route: 048
     Dates: start: 20190525
  3. TACROLIMUS. [Suspect]
     Active Substance: TACROLIMUS
     Dosage: 22 MG, ONCE DAILY (4 CAPSULES OF 5 MG AND 2 CAPSULES OF 1 MG)
     Route: 048
     Dates: start: 20190927, end: 20191212
  4. WARFARIN [Suspect]
     Active Substance: WARFARIN
     Route: 065
     Dates: start: 20190811
  5. ESOMEPRAZOLE. [Concomitant]
     Active Substance: ESOMEPRAZOLE MAGNESIUM
     Indication: GASTRITIS
     Route: 048
  6. PREDNISOLONA [PREDNISOLONE] [Concomitant]
     Indication: RENAL TRANSPLANT
     Route: 048
     Dates: start: 20190525
  7. MYCOPHENOLATE [Concomitant]
     Active Substance: MYCOPHENOLIC ACID
     Indication: PROPHYLAXIS
     Dosage: 720 MG (360 MGCAPSULES), ONCE DAILY
     Route: 048
  8. MYCOPHENOLATE [Concomitant]
     Active Substance: MYCOPHENOLIC ACID
     Route: 048
  9. LOSARTAN. [Concomitant]
     Active Substance: LOSARTAN
     Indication: BLOOD PRESSURE MEASUREMENT
     Dosage: 100 MG IN THE MORNING AND 50 MG IN THE NIGHT
     Route: 048
     Dates: start: 20191203, end: 20191203
  10. PREDNISOLONE. [Concomitant]
     Active Substance: PREDNISOLONE
     Indication: PRODUCT USED FOR UNKNOWN INDICATION
     Route: 065
     Dates: start: 20190525
  11. CARVEDILOL. [Concomitant]
     Active Substance: CARVEDILOL
     Indication: HYPERTENSION
     Route: 048
  12. CLONIDINE. [Concomitant]
     Active Substance: CLONIDINE
     Indication: PRODUCT USED FOR UNKNOWN INDICATION
     Route: 065
  13. MYCOPHENOLATE [Concomitant]
     Active Substance: MYCOPHENOLIC ACID
     Route: 048
     Dates: start: 20190525
  14. FLUCONAZOL [Concomitant]
     Active Substance: FLUCONAZOLE
     Indication: LIVER DISORDER
     Route: 048
  15. TACROLIMUS. [Suspect]
     Active Substance: TACROLIMUS
     Dosage: 25 MG, ONCE DAILY (5 CAPSULES OF 5 MG AND 5 CAPSULES OF 1 MG)
     Route: 048
     Dates: start: 20190816, end: 20190926
  16. TACROLIMUS. [Suspect]
     Active Substance: TACROLIMUS
     Dosage: 10 MG, ONCE DAILY (2 CAPSULES OF 5MG), ONCE DAILY.
     Route: 048
     Dates: start: 20200330
  17. PRAZOSIN. [Concomitant]
     Active Substance: PRAZOSIN
     Indication: PRODUCT USED FOR UNKNOWN INDICATION
     Route: 065
  18. TACROLIMUS. [Suspect]
     Active Substance: TACROLIMUS
     Dosage: 24 MG, ONCE DAILY (4 CAPSULES OF 5 MG AND 4 CAPSULES OF 1 MG)
     Route: 048
     Dates: start: 20190604, end: 20190815
  19. PREDNISOLONA [PREDNISOLONE] [Concomitant]
     Route: 048
  20. FUROSEMIDE. [Concomitant]
     Active Substance: FUROSEMIDE
     Indication: MICTURITION DISORDER
     Route: 048
  21. TACROLIMUS. [Suspect]
     Active Substance: TACROLIMUS
     Indication: RENAL TRANSPLANT
     Dosage: 5 MG, ONCE DAILY (1 CAPSULE OF 5 MG)
     Route: 048
     Dates: start: 20190525, end: 20190603
  22. WARFARIN [Suspect]
     Active Substance: WARFARIN
     Indication: PRODUCT USED FOR UNKNOWN INDICATION
     Route: 065
  23. VERAPAMIL [Concomitant]
     Active Substance: VERAPAMIL HYDROCHLORIDE
     Indication: PRODUCT USED FOR UNKNOWN INDICATION
     Route: 065

REACTIONS (8)
  - Drug level abnormal [Unknown]
  - Blood creatinine abnormal [Recovering/Resolving]
  - White blood cell count decreased [Recovering/Resolving]
  - Blood electrolytes decreased [Recovered/Resolved]
  - Immunosuppressant drug level decreased [Not Recovered/Not Resolved]
  - Blood creatinine abnormal [Recovering/Resolving]
  - Kidney transplant rejection [Recovered/Resolved]
  - Haemorrhage [Recovered/Resolved]

NARRATIVE: CASE EVENT DATE: 20190604
